FAERS Safety Report 9457247 (Version 1)
Quarter: 2013Q3

REPORT INFORMATION
  Report Type: Spontaneous
  Country: RU (occurrence: None)
  Receive Date: 20130812
  Receipt Date: 20130812
  Transmission Date: 20140515
  Serious: Yes (Death, Hospitalization, Other)
  Sender: FDA-Public Use
  Company Number: 2013000189

PATIENT
  Age: 74 Year
  Sex: Female

DRUGS (7)
  1. ACEON [Suspect]
     Indication: HYPERTENSION
     Route: 048
     Dates: start: 201306, end: 201306
  2. CARVEDILOL (CARVEDILOL) [Concomitant]
  3. FUROSEMIDE (FUROSEMIDE) [Suspect]
  4. TORASEMIDE (TORASEMIDE) [Concomitant]
  5. DIGOXIN (DIGOXIN) [Concomitant]
  6. SPIRONOLACTONE (SPRIONOLACTONE) [Suspect]
  7. ACETYLSALICYLIC ACID (ACETYLSALICYLIC ACID) [Suspect]

REACTIONS (6)
  - Bradycardia [None]
  - Hypotension [None]
  - Cough [None]
  - Cardiac asthma [None]
  - Hydrothorax [None]
  - Multi-organ failure [None]
